APPROVED DRUG PRODUCT: GABITRIL
Active Ingredient: TIAGABINE HYDROCHLORIDE
Strength: 20MG
Dosage Form/Route: TABLET;ORAL
Application: N020646 | Product #004
Applicant: CEPHALON INC
Approved: Sep 30, 1997 | RLD: No | RS: No | Type: DISCN